FAERS Safety Report 18130481 (Version 2)
Quarter: 2020Q3

REPORT INFORMATION
  Report Type: Spontaneous
  Country: BR (occurrence: BR)
  Receive Date: 20200810
  Receipt Date: 20200814
  Transmission Date: 20201103
  Serious: No
  Sender: FDA-Public Use
  Company Number: BR-IPSEN BIOPHARMACEUTICALS, INC.-2020-13756

PATIENT
  Age: 31 Year
  Sex: Female
  Weight: 57 kg

DRUGS (2)
  1. DYSPORT [Suspect]
     Active Substance: ABOBOTULINUMTOXINA
     Indication: SKIN WRINKLING
     Dosage: PERIORBITAL: 21 UNITS (3 POINTS IN THE PERIORBITAL, 3 UNITS IN UPPER, 2 UNITS IN BELOW AND 2 UNITS M
     Route: 030
     Dates: start: 20200720, end: 20200720
  2. RETINOIC ACID [Suspect]
     Active Substance: TRETINOIN
     Indication: SKIN EXFOLIATION
     Route: 065
     Dates: start: 20200720

REACTIONS (3)
  - Eye irritation [Unknown]
  - Eyelid oedema [Recovering/Resolving]
  - Facial paresis [Not Recovered/Not Resolved]

NARRATIVE: CASE EVENT DATE: 2020
